FAERS Safety Report 9339163 (Version 5)
Quarter: 2013Q4

REPORT INFORMATION
  Report Type: Spontaneous
  Country: AU (occurrence: AU)
  Receive Date: 20130610
  Receipt Date: 20131011
  Transmission Date: 20140711
  Serious: Yes (Hospitalization, Other)
  Sender: FDA-Public Use
  Company Number: AU-AMGEN-AUSSP2013040148

PATIENT
  Age: 87 Year
  Sex: Female
  Weight: 39.7 kg

DRUGS (9)
  1. PROLIA [Suspect]
     Indication: OSTEOPOROSIS
     Dosage: 60 MG/ML, Q6MO
     Route: 058
     Dates: start: 20111206
  2. KLACID                             /00984601/ [Concomitant]
     Dosage: 250 MG, BID
  3. MICARDIS [Concomitant]
     Dosage: 40/12.5 MG, 1 MANE
  4. OVESTIN [Concomitant]
     Dosage: 1 MG/G, 15 G VAGINAL CREAM UNK
  5. ONBREZ BREEZHALER [Concomitant]
     Dosage: 300 MUG, 1 DAILY
  6. LIPITOR [Concomitant]
     Indication: BLISTER
     Dosage: 20 MG, QD
  7. MOVICOL                            /01625101/ [Concomitant]
     Dosage: SINGLE DOSE SACHETS POWDER QD
  8. PANADOL OSTEO [Concomitant]
     Dosage: 665 MG X 2 MODIFIED RELEASE TABLETS 2 TDS, TID
  9. CALTRATE                           /00944201/ [Concomitant]
     Dosage: 600 MG, QD

REACTIONS (7)
  - Infection [Not Recovered/Not Resolved]
  - Osteomyelitis [Unknown]
  - Purulence [Unknown]
  - Bone loss [Unknown]
  - Oral cavity fistula [Unknown]
  - Osteonecrosis of jaw [Recovering/Resolving]
  - Tooth disorder [Unknown]
